FAERS Safety Report 6325826-9 (Version None)
Quarter: 2009Q3

REPORT INFORMATION
  Report Type: 
  Country: None (occurrence: None)
  Receive Date: 20090824
  Receipt Date: 20070627
  Transmission Date: 20100115
  Serious: No
  Sender: FDA-Public Use
  Company Number: US-ABBOTT-08P-163-0468294-00

PATIENT
  Sex: Male

DRUGS (2)
  1. NIASPAN [Suspect]
     Indication: DRUG USE FOR UNKNOWN INDICATION
     Dates: start: 20050101
  2. ROSUVASTATIN [Concomitant]
     Indication: DRUG USE FOR UNKNOWN INDICATION
     Dates: start: 20050101

REACTIONS (7)
  - BLOOD GLUCOSE INCREASED [None]
  - COLD SWEAT [None]
  - DYSPNOEA [None]
  - HEART RATE INCREASED [None]
  - PARAESTHESIA [None]
  - PRURITUS [None]
  - THROAT TIGHTNESS [None]
